FAERS Safety Report 9196106 (Version 2)
Quarter: 2013Q2

REPORT INFORMATION
  Report Type: Spontaneous
  Country: PR (occurrence: PR)
  Receive Date: 20130328
  Receipt Date: 20130416
  Transmission Date: 20140414
  Serious: Yes (Life-Threatening, Other)
  Sender: FDA-Public Use
  Company Number: PR-RANBAXY-2013RR-66480

PATIENT
  Age: 71 Year
  Sex: Male

DRUGS (4)
  1. SULPHAMETHOXAZOLE/TRIMETHOPRIM [Suspect]
     Indication: CELLULITIS
     Dosage: 2 TABLETS EVERY 12 HOURS
     Route: 048
  2. METOPROLOL [Suspect]
     Indication: HYPERTENSION
     Dosage: 100 MG, TID
     Route: 065
  3. LISINOPRIL [Suspect]
     Indication: HYPERTENSION
     Dosage: 40 MG/DAY
     Route: 065
  4. AZATHIOPRIN [Suspect]

REACTIONS (4)
  - Coma [Recovered/Resolved]
  - Atrioventricular block [Recovering/Resolving]
  - Renal impairment [Recovered/Resolved]
  - Hyperkalaemia [Recovered/Resolved]
